FAERS Safety Report 14915066 (Version 2)
Quarter: 2018Q2

REPORT INFORMATION
  Report Type: Other
  Country: US (occurrence: US)
  Receive Date: 20180518
  Receipt Date: 20180529
  Transmission Date: 20180711
  Serious: Yes (Death)
  Sender: FDA-Public Use
  Company Number: US-INTERCEPT-PMOCA2018000763

PATIENT

DRUGS (1)
  1. OCALIVA [Suspect]
     Active Substance: OBETICHOLIC ACID
     Indication: PRODUCT USED FOR UNKNOWN INDICATION
     Dosage: 5 MG, UNK
     Route: 065
     Dates: start: 20170613

REACTIONS (1)
  - Death [Fatal]
